FAERS Safety Report 4898324-7 (Version None)
Quarter: 2006Q1

REPORT INFORMATION
  Report Type: 
  Country: None (occurrence: None)
  Receive Date: 20060127
  Receipt Date: 20060112
  Transmission Date: 20060701
  Serious: Yes (Other)
  Sender: FDA-Public Use
  Company Number: US200601002065

PATIENT
  Sex: Female

DRUGS (2)
  1. EVISTA [Suspect]
     Indication: OSTEOPOROSIS
     Dosage: SEE IMAGE, ORAL
     Route: 048
     Dates: start: 20001201, end: 20021201
  2. EVISTA [Suspect]
     Indication: OSTEOPOROSIS
     Dosage: SEE IMAGE, ORAL
     Route: 048
     Dates: start: 20021201, end: 20030101

REACTIONS (3)
  - ARTHRALGIA [None]
  - INTENTIONAL OVERDOSE [None]
  - OSTEONECROSIS [None]
